FAERS Safety Report 5075092-X (Version None)
Quarter: 2006Q3

REPORT INFORMATION
  Report Type: 
  Country: None (occurrence: None)
  Receive Date: 20060809
  Receipt Date: 20060726
  Transmission Date: 20061208
  Serious: Yes (Death)
  Sender: FDA-Public Use
  Company Number: US-KINGPHARMUSA00001-K200600971

PATIENT
  Age: 45 Year
  Sex: Female

DRUGS (7)
  1. KEMADRIN [Suspect]
     Dosage: 10 MG, UNK
     Route: 048
     Dates: start: 20031001
  2. ABILIFY [Suspect]
     Indication: PSYCHOTIC DISORDER
     Dosage: 30 MG, UNK
     Dates: start: 20050201
  3. FEMODENE [Concomitant]
     Dates: start: 20060401
  4. SOLIAN [Concomitant]
     Dates: start: 20060101
  5. CITALOPRAM HYDROCHLORIDE [Suspect]
     Indication: DEPRESSION
     Dosage: 20 MG, UNK
     Dates: start: 20031001
  6. KEPPRA [Suspect]
     Indication: EPILEPSY
     Dosage: 2000 MG, UNK
     Dates: start: 20030501
  7. TEGRETOL [Suspect]
     Indication: EPILEPSY
     Dosage: 600 MG, UNK
     Dates: start: 19920101

REACTIONS (3)
  - DEATH [None]
  - POOR PERSONAL HYGIENE [None]
  - WEIGHT INCREASED [None]
